FAERS Safety Report 15426190 (Version 2)
Quarter: 2018Q4

REPORT INFORMATION
  Report Type: Report from Study
  Country: US (occurrence: US)
  Receive Date: 20180925
  Receipt Date: 20181008
  Transmission Date: 20190204
  Serious: Yes (Death, Life-Threatening, Other)
  Sender: FDA-Public Use
  Company Number: US-TEVA-2018-US-957602

PATIENT
  Age: 30 Year
  Sex: Female

DRUGS (3)
  1. FENTANYL. [Suspect]
     Active Substance: FENTANYL
     Route: 065
  2. QUININE [Suspect]
     Active Substance: QUININE
     Route: 065
  3. BUCLIZINE [Suspect]
     Active Substance: BUCLIZINE
     Route: 065

REACTIONS (10)
  - Coma [Unknown]
  - Pneumonia aspiration [Unknown]
  - Depressed level of consciousness [Unknown]
  - Rhabdomyolysis [Unknown]
  - Toxicity to various agents [Fatal]
  - Bradypnoea [Unknown]
  - Myocardial ischaemia [Unknown]
  - Metabolic acidosis [Unknown]
  - Heart injury [Unknown]
  - Acute kidney injury [Unknown]
